FAERS Safety Report 5258670-4 (Version None)
Quarter: 2007Q1

REPORT INFORMATION
  Report Type: 
  Country: None (occurrence: None)
  Receive Date: 20070305
  Receipt Date: 20070226
  Transmission Date: 20070707
  Serious: Yes (Life-Threatening)
  Sender: FDA-Public Use
  Company Number: FRP07000226

PATIENT
  Age: 76 Year
  Sex: Female

DRUGS (3)
  1. ACTONEL [Suspect]
     Dosage: 35 MG, 1/WEEK, ORAL
     Route: 048
     Dates: end: 20070219
  2. PREVISCAN(FLUINDIONE) TABLET, 20MG [Suspect]
     Indication: PULMONARY EMBOLISM
     Dosage: 15 MG, DAILY, ORAL
     Route: 048
     Dates: start: 20070202, end: 20070219
  3. FENOFIBRATE [Suspect]
     Dosage: ORAL
     Route: 048
     Dates: end: 20070219

REACTIONS (4)
  - ABDOMINAL HAEMATOMA [None]
  - ANAEMIA [None]
  - INTERNATIONAL NORMALISED RATIO INCREASED [None]
  - RENAL FAILURE [None]
